FAERS Safety Report 23016395 (Version 4)
Quarter: 2023Q4

REPORT INFORMATION
  Report Type: Spontaneous
  Country: CN (occurrence: CN)
  Receive Date: 20231002
  Receipt Date: 20231015
  Transmission Date: 20240110
  Serious: Yes (Death, Other)
  Sender: FDA-Public Use
  Company Number: CN-BAYER-2023A138039

PATIENT

DRUGS (48)
  1. RIVAROXABAN [Suspect]
     Active Substance: RIVAROXABAN
     Indication: Anticoagulant therapy
     Dosage: 10 MG, QD
     Route: 048
     Dates: start: 20221207, end: 20221207
  2. RIVAROXABAN [Suspect]
     Active Substance: RIVAROXABAN
     Dosage: 20 MG, QD
     Route: 048
     Dates: start: 20221208, end: 20221213
  3. RIVAROXABAN [Suspect]
     Active Substance: RIVAROXABAN
     Dosage: 20 MG, QD
     Route: 048
     Dates: start: 20221214, end: 20221228
  4. RIVAROXABAN [Suspect]
     Active Substance: RIVAROXABAN
     Dosage: 10 MG, QD
     Route: 048
     Dates: start: 20221231, end: 20230103
  5. RIVAROXABAN [Suspect]
     Active Substance: RIVAROXABAN
     Dosage: 20 MG, QD
     Route: 048
     Dates: start: 20230104, end: 20230105
  6. RIVAROXABAN [Suspect]
     Active Substance: RIVAROXABAN
     Dosage: 15 MG, QD
     Route: 048
     Dates: start: 20230106
  7. RIVAROXABAN [Suspect]
     Active Substance: RIVAROXABAN
     Dosage: 15 MG, BID
     Route: 048
     Dates: start: 20230107, end: 20230109
  8. ALBUMIN HUMAN [Concomitant]
     Active Substance: ALBUMIN HUMAN
     Dosage: 10 MG
     Dates: start: 20221221, end: 20221226
  9. ALBUMIN HUMAN [Concomitant]
     Active Substance: ALBUMIN HUMAN
     Dosage: 20 MG
     Dates: start: 20221227, end: 20230109
  10. MEROPENEM [Concomitant]
     Active Substance: MEROPENEM
     Indication: Pneumonia
     Dosage: 1 G
     Dates: start: 20221213, end: 20221222
  11. MEROPENEM [Concomitant]
     Active Substance: MEROPENEM
     Indication: Pneumonia
     Dosage: 0.5 G
     Dates: start: 20221222, end: 20221227
  12. PIPERACILLIN SODIUM [Concomitant]
     Active Substance: PIPERACILLIN SODIUM
  13. SCUTELLARIN [Concomitant]
     Active Substance: SCUTELLARIN
     Dosage: 30 ML
     Dates: start: 20221207, end: 20230105
  14. BUTYLPHTHALIDE [Concomitant]
     Active Substance: BUTYLPHTHALIDE
     Dosage: 25 MG
     Dates: start: 20221206, end: 20221219
  15. BUDESONIDE [Concomitant]
     Active Substance: BUDESONIDE
  16. ALPRAZOLAM [Concomitant]
     Active Substance: ALPRAZOLAM
  17. ATORVASTATIN [Concomitant]
     Active Substance: ATORVASTATIN
  18. DIETARY SUPPLEMENT [Concomitant]
     Active Substance: DIETARY SUPPLEMENT
  19. LIDOCAIN ACCORD [Concomitant]
  20. INSULIN NOS [Concomitant]
     Active Substance: INSULIN NOS
  21. SOMATOSTATIN [Concomitant]
     Active Substance: SOMATOSTATIN
  22. PIPERACILLIN [Concomitant]
     Active Substance: PIPERACILLIN
  23. AMBROXOL [Concomitant]
     Active Substance: AMBROXOL
  24. CARBOPLATIN [Concomitant]
     Active Substance: CARBOPLATIN
     Dosage: 50 MG, QD
     Dates: start: 20230109, end: 20230109
  25. METHYLPREDNISOLONE SODIUM SUCCINATE [Concomitant]
     Active Substance: METHYLPREDNISOLONE SODIUM SUCCINATE
     Dosage: 40 MG
     Dates: start: 20230103, end: 20230105
  26. MENTHOL;PHENOL [Concomitant]
     Dosage: UNK
     Dates: start: 20221211, end: 20230109
  27. MONTMORILLONITE [Concomitant]
     Active Substance: MONTMORILLONITE
     Dosage: UNK
     Dates: start: 20221230, end: 20230105
  28. POTASSIUM CHLORIDE [Concomitant]
     Active Substance: POTASSIUM CHLORIDE
     Dosage: 10 ML, TID
     Route: 048
     Dates: start: 20221213, end: 20221215
  29. POTASSIUM CHLORIDE [Concomitant]
     Active Substance: POTASSIUM CHLORIDE
     Dosage: 20 ML, QD
     Route: 048
     Dates: start: 20221213, end: 20221213
  30. POTASSIUM CHLORIDE [Concomitant]
     Active Substance: POTASSIUM CHLORIDE
     Dosage: 30 ML
     Dates: start: 20221204, end: 20221224
  31. POTASSIUM CHLORIDE [Concomitant]
     Active Substance: POTASSIUM CHLORIDE
     Dosage: UNK
     Dates: start: 20230104, end: 20230105
  32. ATORVASTATIN CALCIUM [Concomitant]
     Active Substance: ATORVASTATIN CALCIUM
     Dosage: 20 MG
     Dates: start: 20221206, end: 20221213
  33. ATORVASTATIN CALCIUM [Concomitant]
     Active Substance: ATORVASTATIN CALCIUM
     Dosage: UNK
     Dates: start: 20221212, end: 20221219
  34. LECITHIN [Concomitant]
     Active Substance: LECITHIN
  35. BUPLEURUM SPP. [Concomitant]
  36. FURAZOLIDONE;INDOMETACIN [Concomitant]
     Dosage: UNK
  37. LIDOCAINE HYDROCHLORIDE [Concomitant]
     Active Substance: LIDOCAINE HYDROCHLORIDE
  38. DESFLURANE [Concomitant]
     Active Substance: DESFLURANE
  39. EPINEPHRINE HYDROCHLORIDE [Concomitant]
     Active Substance: EPINEPHRINE HYDROCHLORIDE
  40. FUROSEMIDE [Concomitant]
     Active Substance: FUROSEMIDE
  41. DOPAMINE HYDROCHLORIDE [Concomitant]
     Active Substance: DOPAMINE HYDROCHLORIDE
  42. THYROXINE [Concomitant]
     Active Substance: LEVOTHYROXINE
  43. ESOMEPRAZOLE SODIUM [Concomitant]
     Active Substance: ESOMEPRAZOLE SODIUM
  44. DEXMEDETOMIDINE HYDROCHLORIDE [Concomitant]
     Active Substance: DEXMEDETOMIDINE HYDROCHLORIDE
  45. ASCORBIC ACID [Concomitant]
     Active Substance: ASCORBIC ACID
  46. MIDAZOLAM [Concomitant]
     Active Substance: MIDAZOLAM
  47. PROPOFOL [Concomitant]
     Active Substance: PROPOFOL
  48. METOPROLOL TARTRATE [Concomitant]
     Active Substance: METOPROLOL TARTRATE

REACTIONS (19)
  - Respiratory failure [Fatal]
  - Oxygen saturation decreased [Unknown]
  - Coma [Unknown]
  - Cardiac arrest [Unknown]
  - Altered state of consciousness [Unknown]
  - Cerebrovascular accident [Unknown]
  - Pneumonia [Unknown]
  - Blood pressure decreased [Unknown]
  - Septic shock [Unknown]
  - Ischaemic cerebral infarction [Unknown]
  - Dyspnoea [Unknown]
  - Heart rate irregular [Unknown]
  - Pyrexia [Unknown]
  - Oxygen saturation abnormal [Unknown]
  - Lethargy [Unknown]
  - Emotional disorder [Unknown]
  - Pseudomonas test positive [Unknown]
  - Miosis [Unknown]
  - Blood pressure immeasurable [Unknown]

NARRATIVE: CASE EVENT DATE: 20230109
